FAERS Safety Report 6492884-0 (Version None)
Quarter: 2009Q4

REPORT INFORMATION
  Report Type: 
  Country: None (occurrence: None)
  Receive Date: 20091214
  Receipt Date: 20091201
  Transmission Date: 20100525
  Serious: Yes (Other)
  Sender: FDA-Public Use
  Company Number: PHHY2009CA53077

PATIENT
  Sex: Female

DRUGS (2)
  1. ACLASTA [Suspect]
     Dosage: UNK
     Dates: start: 20060901
  2. ASPIRIN [Suspect]

REACTIONS (4)
  - CERVICAL SPINAL STENOSIS [None]
  - COELIAC DISEASE [None]
  - DRUG HYPERSENSITIVITY [None]
  - RESPIRATORY DISORDER [None]
